FAERS Safety Report 4407241-8 (Version None)
Quarter: 2004Q3

REPORT INFORMATION
  Report Type: 
  Country: None (occurrence: None)
  Receive Date: 20040723
  Receipt Date: 20040723
  Transmission Date: 20050211
  Serious: No
  Sender: FDA-Public Use
  Company Number: None

PATIENT

DRUGS (1)
  1. ARICEPT [Suspect]
     Dosage: 10 MILLIGRAMS
     Dates: start: 20040601, end: 20040620

REACTIONS (2)
  - ABNORMAL BEHAVIOUR [None]
  - NIGHTMARE [None]
